FAERS Safety Report 7675224-0 (Version None)
Quarter: 2011Q3

REPORT INFORMATION
  Report Type: 
  Country: None (occurrence: None)
  Receive Date: 20110810
  Receipt Date: 20110810
  Transmission Date: 20111222
  Serious: Yes (Other)
  Sender: FDA-Public Use
  Company Number: None

PATIENT
  Sex: Female
  Weight: 87.089 kg

DRUGS (1)
  1. RECLAST [Suspect]
     Indication: OSTEOPOROSIS
     Dosage: 5MG
     Route: 041

REACTIONS (4)
  - MYALGIA [None]
  - PAIN IN EXTREMITY [None]
  - MUSCLE TIGHTNESS [None]
  - BACK PAIN [None]
